FAERS Safety Report 17151659 (Version 2)
Quarter: 2020Q1

REPORT INFORMATION
  Report Type: Spontaneous
  Country: IT (occurrence: IT)
  Receive Date: 20191213
  Receipt Date: 20200113
  Transmission Date: 20200409
  Serious: Yes (Death, Other)
  Sender: FDA-Public Use
  Company Number: IT-PFIZER INC-2019536253

PATIENT
  Age: 40 Year
  Sex: Male
  Weight: 73 kg

DRUGS (11)
  1. OMEPRAZOLE. [Concomitant]
     Active Substance: OMEPRAZOLE
     Dosage: 20 MG, UNK
     Route: 048
  2. XALKORI [Suspect]
     Active Substance: CRIZOTINIB
     Indication: LUNG ADENOCARCINOMA
     Dosage: 500 MG, 1X/DAY
     Route: 048
     Dates: start: 20161017, end: 20190630
  3. TRIAZOLAM. [Concomitant]
     Active Substance: TRIAZOLAM
     Dosage: UNK
     Dates: start: 20161027, end: 20190630
  4. ENOXAPARIN [Concomitant]
     Active Substance: ENOXAPARIN
     Dosage: 4000 KIU, UNK
     Dates: start: 20181030, end: 20190816
  5. POTASSIUM CANRENOATE [Concomitant]
     Active Substance: CANRENOATE POTASSIUM
     Dosage: 50 MG, UNK
  6. BISOPROLOL FUMARATE. [Concomitant]
     Active Substance: BISOPROLOL FUMARATE
     Dosage: 1.25 MG, UNK
  7. TIOTROPIUM BROMIDE [Concomitant]
     Active Substance: TIOTROPIUM BROMIDE
     Dosage: 18 UG, UNK
  8. RAMIPRIL. [Concomitant]
     Active Substance: RAMIPRIL
     Indication: CARDIAC VALVE DISEASE
     Dosage: UNK
     Dates: start: 20161027, end: 20190630
  9. ALLOPURINOL. [Concomitant]
     Active Substance: ALLOPURINOL
     Dosage: 300 MG, UNK
     Route: 048
  10. ALIFLUS DISKUS [Concomitant]
     Active Substance: FLUTICASONE PROPIONATE\SALMETEROL XINAFOATE
     Dosage: UNK
  11. FUROSEMIDE. [Concomitant]
     Active Substance: FUROSEMIDE
     Dosage: 100 MG, UNK

REACTIONS (3)
  - Pneumonia [Fatal]
  - Asthenia [Unknown]
  - Cerebral ischaemia [Fatal]

NARRATIVE: CASE EVENT DATE: 20190628
